FAERS Safety Report 25571676 (Version 1)
Quarter: 2025Q3

REPORT INFORMATION
  Report Type: Spontaneous
  Country: US (occurrence: US)
  Receive Date: 20250717
  Receipt Date: 20250717
  Transmission Date: 20251020
  Serious: Yes (Other)
  Sender: AMGEN
  Company Number: US-AMGEN-USASP2025136103

PATIENT
  Age: 4 Decade
  Sex: Female

DRUGS (10)
  1. TRASTUZUMAB [Suspect]
     Active Substance: TRASTUZUMAB
     Indication: Invasive ductal breast carcinoma
     Route: 065
  2. TRASTUZUMAB [Suspect]
     Active Substance: TRASTUZUMAB
     Indication: Triple positive breast cancer
  3. TAMOXIFEN [Concomitant]
     Active Substance: TAMOXIFEN
     Indication: Invasive ductal breast carcinoma
  4. TAMOXIFEN [Concomitant]
     Active Substance: TAMOXIFEN
     Indication: Triple positive breast cancer
  5. CARBOPLATIN [Concomitant]
     Active Substance: CARBOPLATIN
     Indication: Invasive ductal breast carcinoma
  6. CARBOPLATIN [Concomitant]
     Active Substance: CARBOPLATIN
     Indication: Triple positive breast cancer
  7. DOCETAXEL [Concomitant]
     Active Substance: DOCETAXEL
     Indication: Invasive ductal breast carcinoma
  8. DOCETAXEL [Concomitant]
     Active Substance: DOCETAXEL
     Indication: Triple positive breast cancer
  9. PERTUZUMAB [Concomitant]
     Active Substance: PERTUZUMAB
     Indication: Invasive ductal breast carcinoma
  10. PERTUZUMAB [Concomitant]
     Active Substance: PERTUZUMAB
     Indication: Triple positive breast cancer

REACTIONS (4)
  - Ovarian hyperstimulation syndrome [Recovering/Resolving]
  - Endometriosis [Unknown]
  - Mullerian duct cyst [Unknown]
  - Off label use [Unknown]
